FAERS Safety Report 10572216 (Version 1)
Quarter: 2014Q4

REPORT INFORMATION
  Report Type: Spontaneous
  Country: US (occurrence: US)
  Receive Date: 20141108
  Receipt Date: 20141108
  Transmission Date: 20150529
  Serious: No
  Sender: FDA-Public Use
  Company Number: US-009507513-1410USA016195

PATIENT
  Age: 59 Year
  Sex: Female

DRUGS (4)
  1. PREDNISONE. [Suspect]
     Active Substance: PREDNISONE
  2. OXYCODONE [Suspect]
     Active Substance: OXYCODONE
  3. DILAUDID [Suspect]
     Active Substance: HYDROMORPHONE HYDROCHLORIDE
  4. DECADRON [Suspect]
     Active Substance: DEXAMETHASONE
     Route: 042

REACTIONS (1)
  - Substance-induced psychotic disorder [Unknown]
